FAERS Safety Report 7530309-4 (Version None)
Quarter: 2011Q2

REPORT INFORMATION
  Report Type: 
  Country: None (occurrence: None)
  Receive Date: 20110607
  Receipt Date: 20110601
  Transmission Date: 20111010
  Serious: Yes (Life-Threatening, Hospitalization)
  Sender: FDA-Public Use
  Company Number: US-GILEAD-2011-0035696

PATIENT
  Sex: Female

DRUGS (17)
  1. LANTUS [Concomitant]
  2. ACETAMINOPHEN AND HYDROCODONE BITARTRATE [Concomitant]
  3. FOLTRIN [Concomitant]
  4. MULTI-VITAMINS [Concomitant]
  5. OXYGEN [Concomitant]
  6. LETAIRIS [Suspect]
     Indication: PULMONARY HYPERTENSION
     Route: 048
     Dates: start: 20101101
  7. OMEPRAZOLE [Concomitant]
  8. SPIRONOLACTONE [Concomitant]
  9. FUROSEMIDE [Concomitant]
  10. LEXAPRO [Concomitant]
  11. VITAMIN D [Concomitant]
  12. ADCIRCA [Concomitant]
  13. CALCIUM +D                         /00188401/ [Concomitant]
  14. OMEGA 3                            /00931501/ [Concomitant]
  15. WARFARIN SODIUM [Concomitant]
  16. MAGNESIUM OXIDE [Concomitant]
  17. FLUOXETINE HCL [Concomitant]

REACTIONS (1)
  - LOWER GASTROINTESTINAL HAEMORRHAGE [None]
